FAERS Safety Report 7010411-6 (Version None)
Quarter: 2010Q3

REPORT INFORMATION
  Report Type: 
  Country: None (occurrence: None)
  Receive Date: 20100923
  Receipt Date: 20100713
  Transmission Date: 20110219
  Serious: No
  Sender: FDA-Public Use
  Company Number: US-BAUSCH-2010BL003805

PATIENT
  Age: 40 Year
  Sex: Female

DRUGS (4)
  1. BESIVANCE [Suspect]
     Indication: CONJUNCTIVITIS
     Route: 047
     Dates: start: 20100711
  2. CIPROFLOXACIN [Suspect]
     Indication: CONJUNCTIVITIS
     Route: 047
     Dates: start: 20100630, end: 20100704
  3. TOBRAMYCIN [Suspect]
     Indication: CONJUNCTIVITIS
     Route: 047
     Dates: start: 20100705, end: 20100710
  4. ERYTHROMYCIN [Suspect]
     Indication: CONJUNCTIVITIS
     Route: 047
     Dates: start: 20100705, end: 20100710

REACTIONS (1)
  - VISION BLURRED [None]
